FAERS Safety Report 16067329 (Version 1)
Quarter: 2019Q1

REPORT INFORMATION
  Report Type: Spontaneous
  Country: US (occurrence: US)
  Receive Date: 20190212
  Receipt Date: 20190212
  Transmission Date: 20190418
  Serious: No
  Sender: FDA-Public Use
  Company Number: None

PATIENT
  Age: 73 Year
  Sex: Female

DRUGS (1)
  1. GLATIRAMER PFS INJ (30/BOX) [Suspect]
     Active Substance: GLATIRAMER ACETATE
     Dates: start: 201801

REACTIONS (2)
  - Product use issue [None]
  - Prescribed underdose [None]

NARRATIVE: CASE EVENT DATE: 20190208
